FAERS Safety Report 4859829-8 (Version None)
Quarter: 2005Q4

REPORT INFORMATION
  Report Type: 
  Country: None (occurrence: None)
  Receive Date: 20051219
  Receipt Date: 20051213
  Transmission Date: 20060501
  Serious: Yes (Life-Threatening)
  Sender: FDA-Public Use
  Company Number: NL-GLAXOSMITHKLINE-B0403757A

PATIENT
  Age: 40 Year
  Sex: Male

DRUGS (2)
  1. PAROXETINE HYDROCHLORIDE [Suspect]
     Indication: DRUG USE FOR UNKNOWN INDICATION
     Dosage: 20MG PER DAY
     Dates: start: 20011010, end: 20011030
  2. SERESTA [Concomitant]
     Dosage: 10MG THREE TIMES PER DAY
     Dates: start: 20010818

REACTIONS (1)
  - POST-TRAUMATIC STRESS DISORDER [None]
